FAERS Safety Report 21812780 (Version 1)
Quarter: 2023Q1

REPORT INFORMATION
  Report Type: Spontaneous
  Country: CN (occurrence: CN)
  Receive Date: 20230103
  Receipt Date: 20230103
  Transmission Date: 20230418
  Serious: Yes (Other)
  Sender: FDA-Public Use
  Company Number: CN-009507513-2301CHN000256

PATIENT
  Age: 67 Year
  Sex: Male
  Weight: 80 kg

DRUGS (6)
  1. KEYTRUDA [Suspect]
     Active Substance: PEMBROLIZUMAB
     Indication: Squamous cell carcinoma of lung
     Dosage: 200 MILLIGRAM, Q3W, STRENGTH 100 MG/4 ML
     Dates: start: 20210304, end: 20210304
  2. KEYTRUDA [Suspect]
     Active Substance: PEMBROLIZUMAB
     Dosage: 200 MILLIGRAM, Q3W, STRENGTH 100 MG/4 ML
     Dates: start: 20210325, end: 20210325
  3. ABRAXANE [Concomitant]
     Active Substance: PACLITAXEL
     Indication: Squamous cell carcinoma of lung
     Dosage: 400 MILLIGRAM, Q3W
     Dates: start: 20210304
  4. ABRAXANE [Concomitant]
     Active Substance: PACLITAXEL
     Dosage: 400 MILLIGRAM, Q3W
     Dates: start: 20210325
  5. NEDAPLATIN [Concomitant]
     Active Substance: NEDAPLATIN
     Indication: Squamous cell carcinoma of lung
     Dosage: 150 MILLIGRAM, Q3W
     Dates: start: 20210304
  6. NEDAPLATIN [Concomitant]
     Active Substance: NEDAPLATIN
     Dosage: 150 MILLIGRAM, Q3W
     Dates: start: 20210325

REACTIONS (3)
  - Immune-mediated hepatic disorder [Recovered/Resolved]
  - Immune-mediated myositis [Recovered/Resolved]
  - Immune-mediated myocarditis [Recovered/Resolved]

NARRATIVE: CASE EVENT DATE: 20210301
